FAERS Safety Report 10336179 (Version 1)
Quarter: 2014Q3

REPORT INFORMATION
  Report Type: Spontaneous
  Country: US (occurrence: US)
  Receive Date: 20140723
  Receipt Date: 20140723
  Transmission Date: 20150326
  Serious: No
  Sender: FDA-Public Use
  Company Number: US-BRISTOL-MYERS SQUIBB COMPANY-19887892

PATIENT
  Age: 76 Year
  Sex: Female

DRUGS (10)
  1. LISINOPRIL. [Concomitant]
     Active Substance: LISINOPRIL
     Dosage: TABS
  2. ZOCOR [Concomitant]
     Active Substance: SIMVASTATIN
     Dosage: TABS
  3. ALEVE [Concomitant]
     Active Substance: NAPROXEN SODIUM
     Dosage: TABS
  4. ASPIRIN. [Concomitant]
     Active Substance: ASPIRIN
     Dosage: TABS
  5. TIKOSYN [Suspect]
     Active Substance: DOFETILIDE
     Dosage: CAPS
  6. CHOLECALCIFEROL [Concomitant]
     Active Substance: CHOLECALCIFEROL
  7. KLOR-CON M [Concomitant]
     Active Substance: POTASSIUM CHLORIDE
     Dosage: 1DF=20 MEQ TABLET
  8. LASIX [Concomitant]
     Active Substance: FUROSEMIDE
     Dosage: TABS
  9. COUMADIN [Suspect]
     Active Substance: WARFARIN SODIUM
  10. METOPROLOL [Concomitant]
     Active Substance: METOPROLOL
     Dosage: TABS

REACTIONS (2)
  - Hypersensitivity [Unknown]
  - Fatigue [Unknown]
